FAERS Safety Report 9512311 (Version 1)
Quarter: 2013Q3

REPORT INFORMATION
  Report Type: Spontaneous
  Country: US (occurrence: US)
  Receive Date: 20130910
  Receipt Date: 20130910
  Transmission Date: 20140515
  Serious: No
  Sender: FDA-Public Use
  Company Number: -SAAVPROD-BMS17012162

PATIENT
  Sex: Male

DRUGS (1)
  1. AVAPRO TABS [Suspect]
     Dosage: 1/4 OF THE PILL,1/2 OF THE PILL AND ONE TABLET.

REACTIONS (1)
  - Sleep phase rhythm disturbance [Unknown]
